FAERS Safety Report 9332134 (Version 2)
Quarter: 2013Q3

REPORT INFORMATION
  Report Type: Report from Study
  Country: GB (occurrence: GB)
  Receive Date: 20130606
  Receipt Date: 20130708
  Transmission Date: 20140515
  Serious: Yes (Hospitalization)
  Sender: FDA-Public Use
  Company Number: GB-ROCHE-1230932

PATIENT
  Age: 86 Year
  Sex: Female

DRUGS (17)
  1. RANIBIZUMAB [Suspect]
     Indication: PRODUCT USED FOR UNKNOWN INDICATION
     Route: 050
  2. APIXABAN [Concomitant]
     Route: 065
  3. CALCICHEW D3 [Concomitant]
  4. LATANOPROST EYE DROPS [Concomitant]
     Dosage: 50 MG/ML
     Route: 065
  5. AMITRIPTYLINE [Concomitant]
     Route: 065
  6. IRBESARTAN [Concomitant]
     Route: 065
  7. SIMVASTATIN [Concomitant]
     Route: 065
  8. ALENDRONIC ACID [Concomitant]
     Route: 065
  9. BISOPROLOL FUMARATE [Concomitant]
     Route: 065
  10. OMEPRAZOLE [Concomitant]
     Route: 065
  11. PARACETAMOL [Concomitant]
  12. CODEINE PHOSPHATE [Concomitant]
     Route: 065
  13. MACROGOL 3350 [Concomitant]
  14. NAPROXEN [Concomitant]
  15. CODEINE [Concomitant]
  16. PRESERVISION AREDS [Concomitant]
  17. TRAMACET [Concomitant]

REACTIONS (5)
  - Blood urea increased [Not Recovered/Not Resolved]
  - Blood creatine increased [Not Recovered/Not Resolved]
  - Haematocrit decreased [Recovering/Resolving]
  - Eosinophil count decreased [Not Recovered/Not Resolved]
  - Haemoglobin decreased [Recovered/Resolved]
